FAERS Safety Report 18315292 (Version 5)
Quarter: 2020Q4

REPORT INFORMATION
  Report Type: Spontaneous
  Country: BR (occurrence: BR)
  Receive Date: 20200926
  Receipt Date: 20201228
  Transmission Date: 20210113
  Serious: Yes (Other)
  Sender: FDA-Public Use
  Company Number: BR-CELLTRION INC.-2019BR019734

PATIENT

DRUGS (8)
  1. REMSIMA [Suspect]
     Active Substance: INFLIXIMAB
     Dosage: UNK
     Route: 065
     Dates: start: 2016, end: 20190109
  2. REMSIMA [Suspect]
     Active Substance: INFLIXIMAB
     Indication: PSORIATIC ARTHROPATHY
     Dosage: 200 MG EVERY 8 WEEKS
     Route: 042
     Dates: start: 2012, end: 202009
  3. REMSIMA [Suspect]
     Active Substance: INFLIXIMAB
     Dosage: UNK
  4. REMSIMA [Suspect]
     Active Substance: INFLIXIMAB
     Indication: PSORIASIS
     Dosage: UNK
     Route: 065
     Dates: start: 2012, end: 20200608
  5. REMSIMA [Suspect]
     Active Substance: INFLIXIMAB
     Dosage: 1 IV (INTRAVENOUS) AMPULE OF 100 MG EVERY 8 WEEKS (MAINTENANCE PHASE)
     Route: 042
     Dates: start: 2012, end: 202009
  6. REMSIMA [Suspect]
     Active Substance: INFLIXIMAB
     Dosage: UNK
     Route: 065
  7. REMSIMA [Suspect]
     Active Substance: INFLIXIMAB
     Dosage: 100 MG EVERY 2 MONTHS
     Route: 042
     Dates: start: 2012, end: 20201209
  8. ARADOIS [Concomitant]
     Active Substance: LOSARTAN POTASSIUM
     Indication: HYPERTENSION
     Dosage: 1 TABLET AT NIGHT (ABOUT 4 YEARS)
     Route: 048

REACTIONS (14)
  - Erysipelas [Unknown]
  - Sensitive skin [Unknown]
  - Haematoma [Unknown]
  - Pain [Unknown]
  - Road traffic accident [Unknown]
  - Injury [Unknown]
  - Ill-defined disorder [Recovering/Resolving]
  - Limb injury [Unknown]
  - Thermal burn [Unknown]
  - Inflammation [Unknown]
  - Intentional dose omission [Unknown]
  - Upper limb fracture [Unknown]
  - Ligament sprain [Unknown]
  - Underdose [Unknown]

NARRATIVE: CASE EVENT DATE: 20190301
